FAERS Safety Report 9093689 (Version 1)
Quarter: 2013Q1

REPORT INFORMATION
  Report Type: Spontaneous
  Country: US (occurrence: None)
  Receive Date: 20130213
  Receipt Date: 20130213
  Transmission Date: 20140127
  Serious: Yes (Other)
  Sender: FDA-Public Use
  Company Number: None

PATIENT
  Sex: Female
  Weight: 71.67 kg

DRUGS (1)
  1. OMEPRAZOLE [Suspect]
     Dates: start: 20121215, end: 20130115

REACTIONS (6)
  - Eye disorder [None]
  - Myalgia [None]
  - Back pain [None]
  - Fatigue [None]
  - Memory impairment [None]
  - Gastrooesophageal reflux disease [None]
